FAERS Safety Report 8534738-1 (Version None)
Quarter: 2012Q3

REPORT INFORMATION
  Report Type: 
  Country: None (occurrence: None)
  Receive Date: 20120724
  Receipt Date: 20120713
  Transmission Date: 20120928
  Serious: Yes (Hospitalization)
  Sender: FDA-Public Use
  Company Number: JP-GLAXOSMITHKLINE-B0815427A

PATIENT
  Sex: Female

DRUGS (6)
  1. PROMACTA [Suspect]
     Indication: IDIOPATHIC THROMBOCYTOPENIC PURPURA
     Dosage: 25MG PER DAY
     Route: 048
     Dates: start: 20120326, end: 20120712
  2. DIGOXIN [Concomitant]
     Indication: CARDIAC FAILURE
     Route: 048
  3. ISOSORBIDE DINITRATE (ISOPIT) [Concomitant]
     Indication: CEREBRAL INFARCTION
     Route: 062
  4. DEPAKENE [Concomitant]
     Indication: EPILEPSY
     Route: 048
  5. CIMETIDINE [Concomitant]
     Indication: GASTRIC ULCER
     Route: 048
  6. ISOSORBIDE MONONITRATE [Concomitant]
     Indication: CEREBRAL INFARCTION
     Route: 048

REACTIONS (2)
  - CEREBRAL INFARCTION [None]
  - ALTERED STATE OF CONSCIOUSNESS [None]
